FAERS Safety Report 4856309-0 (Version None)
Quarter: 2005Q4

REPORT INFORMATION
  Report Type: 
  Country: None (occurrence: None)
  Receive Date: 20051219
  Receipt Date: 20051208
  Transmission Date: 20060501
  Serious: Yes (Hospitalization)
  Sender: FDA-Public Use
  Company Number: RO-JNJFOC-20051201983

PATIENT
  Sex: Female
  Weight: 122 kg

DRUGS (5)
  1. REMICADE [Suspect]
     Indication: RHEUMATOID ARTHRITIS
     Dosage: 3 INFUSIONS
     Route: 042
  2. METHOTREXATE [Concomitant]
     Route: 048
     Dates: start: 20051104
  3. METHOTREXATE [Concomitant]
     Indication: RHEUMATOID ARTHRITIS
     Route: 048
     Dates: start: 20051104
  4. SULFASALAZINE [Concomitant]
     Indication: RHEUMATOID ARTHRITIS
     Route: 048
     Dates: start: 20040907, end: 20051116
  5. PLAQUENIC [Concomitant]
     Indication: RHEUMATOID ARTHRITIS
     Route: 048
     Dates: start: 20050410

REACTIONS (1)
  - BRONCHIOLITIS [None]
